FAERS Safety Report 17130347 (Version 1)
Quarter: 2019Q4

REPORT INFORMATION
  Report Type: Report from Study
  Country: US (occurrence: US)
  Receive Date: 20191209
  Receipt Date: 20191209
  Transmission Date: 20200122
  Serious: Yes (Death, Hospitalization)
  Sender: FDA-Public Use
  Company Number: US-ACTELION-A-NJ2015-121487

PATIENT
  Age: 64 Year
  Sex: Female

DRUGS (3)
  1. OPSUMIT [Suspect]
     Active Substance: MACITENTAN
     Indication: PULMONARY ARTERIAL HYPERTENSION
     Dosage: UNK
     Route: 048
     Dates: start: 20150604, end: 20150914
  2. REVATIO [Concomitant]
     Active Substance: SILDENAFIL CITRATE
     Dosage: UNK
     Dates: start: 20150718
  3. LETAIRIS [Concomitant]
     Active Substance: AMBRISENTAN
     Dosage: UNK
     Dates: start: 20150825

REACTIONS (19)
  - Condition aggravated [Unknown]
  - Right ventricular failure [Recovered/Resolved]
  - Oedema peripheral [Recovered/Resolved]
  - Haemoglobin decreased [Unknown]
  - Brain natriuretic peptide increased [Recovered/Resolved]
  - Hypoxia [Fatal]
  - Pulmonary arterial hypertension [Fatal]
  - Pain [Recovered/Resolved]
  - Respiratory failure [Not Recovered/Not Resolved]
  - Haematocrit decreased [Unknown]
  - Cardiac failure congestive [Fatal]
  - CREST syndrome [Unknown]
  - Cardiac failure acute [Not Recovered/Not Resolved]
  - Blood creatinine increased [Unknown]
  - Renal failure [Fatal]
  - Dyspnoea [Recovered/Resolved]
  - Blood urea increased [Unknown]
  - Pulmonary veno-occlusive disease [Fatal]
  - Oedema [Recovered/Resolved]

NARRATIVE: CASE EVENT DATE: 20150717
